FAERS Safety Report 11222419 (Version 1)
Quarter: 2015Q2

REPORT INFORMATION
  Report Type: Spontaneous
  Country: US (occurrence: US)
  Receive Date: 20150626
  Receipt Date: 20150626
  Transmission Date: 20150821
  Serious: No
  Sender: FDA-Public Use
  Company Number: US-TARO-2015TAR00495

PATIENT
  Age: 69 Year
  Sex: Female
  Weight: 79.37 kg

DRUGS (2)
  1. CLOTRIMAZOLE/BETAMETHASONE DIPROPIONATE CREAM USP 1%/0.05% [Suspect]
     Active Substance: BETAMETHASONE DIPROPIONATE\CLOTRIMAZOLE
     Indication: VULVAL DISORDER
     Dosage: UNK UNK, 2X/DAY
     Route: 061
     Dates: start: 20150519
  2. ESTRACE [Suspect]
     Active Substance: ESTRADIOL
     Indication: VULVAL DISORDER
     Dosage: 1 G, 1X/DAY
     Route: 061
     Dates: start: 20150519

REACTIONS (2)
  - Blood glucose increased [Not Recovered/Not Resolved]
  - Vulvovaginal swelling [Not Recovered/Not Resolved]

NARRATIVE: CASE EVENT DATE: 201505
